FAERS Safety Report 25628350 (Version 6)
Quarter: 2025Q3

REPORT INFORMATION
  Report Type: Spontaneous
  Country: EU (occurrence: EU)
  Receive Date: 20250731
  Receipt Date: 20250926
  Transmission Date: 20251021
  Serious: Yes (Death, Hospitalization)
  Sender: BIOMARIN
  Company Number: EU-BIOMARINAP-IT-2025-167321

PATIENT
  Age: 42 Year
  Sex: Female

DRUGS (2)
  1. VIMIZIM [Suspect]
     Active Substance: ELOSULFASE ALFA
     Indication: Product used for unknown indication
     Dosage: UNK, QW
  2. CORTISONE [Concomitant]
     Active Substance: CORTISONE
     Indication: Premedication

REACTIONS (11)
  - Death [Fatal]
  - Pulmonary mass [Unknown]
  - Pleural effusion [Unknown]
  - Anaemia [Unknown]
  - Pneumonia [Unknown]
  - Neoplasm malignant [Unknown]
  - Spinal cord compression [Unknown]
  - Thyroid mass [Unknown]
  - Pyrexia [Not Recovered/Not Resolved]
  - Hypoxia [Unknown]
  - C-reactive protein increased [Unknown]

NARRATIVE: CASE EVENT DATE: 20250701
